FAERS Safety Report 12665871 (Version 1)
Quarter: 2016Q3

REPORT INFORMATION
  Report Type: Spontaneous
  Country: US (occurrence: US)
  Receive Date: 20160818
  Receipt Date: 20160818
  Transmission Date: 20161109
  Serious: Yes (Death)
  Sender: FDA-Public Use
  Company Number: US-BION-20160363

PATIENT
  Age: 44 Year
  Sex: Male

DRUGS (7)
  1. PREGABALIN. [Concomitant]
     Active Substance: PREGABALIN
  2. LOPRAMIDE HCL CAPSULES [Suspect]
     Active Substance: LOPERAMIDE HYDROCHLORIDE
     Route: 048
  3. DIAZEPAM. [Concomitant]
     Active Substance: DIAZEPAM
  4. TRAZODONE [Concomitant]
     Active Substance: TRAZODONE HYDROCHLORIDE
  5. DULOXETINE. [Concomitant]
     Active Substance: DULOXETINE
  6. NORDIAZEPAM [Concomitant]
     Active Substance: NORDAZEPAM
  7. CYCLOBENZAPRINE [Concomitant]
     Active Substance: CYCLOBENZAPRINE

REACTIONS (7)
  - Cardiomegaly [Fatal]
  - Sleep apnoea syndrome [Fatal]
  - Pneumonia [Fatal]
  - Accidental overdose [None]
  - Drug abuse [Fatal]
  - Pulse absent [None]
  - Hepatic steatosis [Fatal]
